FAERS Safety Report 22273655 (Version 3)
Quarter: 2024Q4

REPORT INFORMATION
  Report Type: Report from Study
  Country: US (occurrence: US)
  Receive Date: 20230502
  Receipt Date: 20241216
  Transmission Date: 20250114
  Serious: Yes (Other)
  Sender: ABBVIE
  Company Number: US-ABBVIE-4745026

PATIENT
  Age: 66 Year
  Sex: Female

DRUGS (2)
  1. SKYRIZI [Suspect]
     Active Substance: RISANKIZUMAB-RZAA
     Indication: Psoriasis
     Route: 058
     Dates: start: 20191011, end: 202302
  2. SKYRIZI [Suspect]
     Active Substance: RISANKIZUMAB-RZAA
     Dosage: LAST ADMIN DATE : 2019
     Route: 058
     Dates: start: 20190727

REACTIONS (7)
  - Lip and/or oral cavity cancer [Recovered/Resolved]
  - Sinusitis [Unknown]
  - Skin graft [Unknown]
  - Alopecia [Unknown]
  - Surgery [Unknown]
  - Lymphadenectomy [Unknown]
  - Infection [Unknown]

NARRATIVE: CASE EVENT DATE: 20221201
